FAERS Safety Report 9660290 (Version 6)
Quarter: 2014Q2

REPORT INFORMATION
  Report Type: Spontaneous
  Country: JP (occurrence: JP)
  Receive Date: 20131031
  Receipt Date: 20140603
  Transmission Date: 20141212
  Serious: Yes (Hospitalization, Other)
  Sender: FDA-Public Use
  Company Number: JP-ELI_LILLY_AND_COMPANY-JP201310006406

PATIENT
  Age: 40 Year
  Sex: Female
  Weight: 82 kg

DRUGS (13)
  1. HUMALOG LISPRO [Suspect]
     Dosage: UNK
     Route: 058
     Dates: start: 20110406, end: 20110517
  2. HUMALOG LISPRO [Suspect]
     Dosage: UNK
     Route: 058
     Dates: start: 20110518
  3. LANTUS [Suspect]
     Indication: LATENT AUTOIMMUNE DIABETES IN ADULTS
     Dosage: UNK
     Route: 058
     Dates: start: 20110406, end: 20110517
  4. LANTUS [Suspect]
     Dosage: UNK
     Route: 058
     Dates: start: 20110518
  5. ACTOS [Concomitant]
     Indication: LATENT AUTOIMMUNE DIABETES IN ADULTS
     Dosage: UNK
     Route: 048
  6. GLUCOBAY [Concomitant]
     Indication: LATENT AUTOIMMUNE DIABETES IN ADULTS
     Dosage: UNK
     Route: 048
  7. THYRADIN-S [Concomitant]
     Indication: HYPOTHYROIDISM
     Dosage: UNK
     Route: 048
  8. LULLAN [Concomitant]
     Indication: DEPRESSION
     Dosage: UNK
     Route: 048
  9. LULLAN [Concomitant]
     Indication: PANIC DISORDER
  10. SILECE [Concomitant]
     Indication: DEPRESSION
     Dosage: UNK
     Route: 048
  11. SILECE [Concomitant]
     Indication: PANIC DISORDER
  12. RISPERDAL [Concomitant]
     Indication: DEPRESSION
     Dosage: UNK
     Route: 048
  13. RISPERDAL [Concomitant]
     Indication: PANIC DISORDER

REACTIONS (4)
  - Suicide attempt [Not Recovered/Not Resolved]
  - Intentional overdose [Recovered/Resolved]
  - Hypoglycaemia [Recovered/Resolved]
  - Blood glucose increased [Unknown]
